FAERS Safety Report 18060937 (Version 2)
Quarter: 2021Q2

REPORT INFORMATION
  Report Type: Spontaneous
  Country: US (occurrence: US)
  Receive Date: 20200723
  Receipt Date: 20210421
  Transmission Date: 20210717
  Serious: Yes (Other)
  Sender: FDA-Public Use
  Company Number: US-MYLANLABS-2020M1066550

PATIENT
  Age: 65 Year
  Sex: Female
  Weight: 56.69 kg

DRUGS (10)
  1. VALSARTAN AND HYDROCHLOROTHIAZIDE TABLETS, USP [Suspect]
     Active Substance: HYDROCHLOROTHIAZIDE\VALSARTAN
     Indication: HYPERTENSION
     Dosage: UNK 160/25 MG
     Dates: start: 20130611, end: 20141126
  2. MODAFINIL. [Concomitant]
     Active Substance: MODAFINIL
     Indication: SOMNOLENCE
     Dosage: 200 MILLIGRAM, QD
     Dates: start: 201502, end: 201610
  3. SERTALIN [Concomitant]
     Indication: DEPRESSION
     Dosage: 50 MILLIGRAM
     Dates: start: 2013
  4. ATORVASTATIN CALCIUM. [Concomitant]
     Active Substance: ATORVASTATIN CALCIUM
     Indication: HYPERLIPIDAEMIA
     Dosage: 40 MILLIGRAM, QD
     Dates: start: 2013, end: 201808
  5. NUVIGIL [Concomitant]
     Active Substance: ARMODAFINIL
     Indication: SOMNOLENCE
     Dosage: 150 MILLIGRAM, QD
     Dates: start: 2012, end: 201503
  6. LORAZEPAM. [Concomitant]
     Active Substance: LORAZEPAM
     Indication: HYPERTENSION
     Dosage: 0.5 MILLIGRAM, QD
     Dates: start: 20190629
  7. VALSARTAN AND HYDROCHLOROTHIAZIDE TABLETS, USP [Suspect]
     Active Substance: HYDROCHLOROTHIAZIDE\VALSARTAN
     Indication: HYPERTENSION
     Dosage: UNK 160/25 MG
     Dates: start: 20150119, end: 20151003
  8. LOSARTAN/HCT [Concomitant]
     Active Substance: HYDROCHLOROTHIAZIDE\LOSARTAN POTASSIUM
     Indication: HYPERTENSION
     Dosage: UNK, QD 50/12.5MG/DAY
     Dates: start: 20180906, end: 201906
  9. ZOLPIDEM TARTRATE. [Concomitant]
     Active Substance: ZOLPIDEM TARTRATE
     Indication: INSOMNIA
     Dosage: 10 MILLIGRAM, PM (AT NIGHT)
     Dates: start: 201301
  10. ZETIA [Concomitant]
     Active Substance: EZETIMIBE
     Indication: HYPERLIPIDAEMIA
     Dosage: 10 MILLIGRAM, QD
     Dates: start: 20140616, end: 201612

REACTIONS (5)
  - Liposarcoma [Unknown]
  - Small intestine carcinoma [Unknown]
  - Hepatic cancer [Unknown]
  - Renal cancer [Unknown]
  - Colorectal cancer [Unknown]

NARRATIVE: CASE EVENT DATE: 20180813
